FAERS Safety Report 8052405-8 (Version None)
Quarter: 2012Q1

REPORT INFORMATION
  Report Type: 
  Country: None (occurrence: None)
  Receive Date: 20120118
  Receipt Date: 20120116
  Transmission Date: 20120608
  Serious: Yes (Other)
  Sender: FDA-Public Use
  Company Number: US-PFIZER INC-2012012772

PATIENT
  Sex: Male
  Weight: 85.714 kg

DRUGS (2)
  1. ATORVASTATIN CALCIUM [Suspect]
     Indication: BLOOD CHOLESTEROL INCREASED
     Dosage: UNK
     Dates: start: 20101001
  2. LIPITOR [Suspect]
     Indication: BLOOD CHOLESTEROL INCREASED
     Dosage: 10 MG, DAILY

REACTIONS (7)
  - PAIN IN EXTREMITY [None]
  - MYALGIA [None]
  - MUSCLE SPASMS [None]
  - BLOOD CHOLESTEROL INCREASED [None]
  - SCIATICA [None]
  - MUSCLE ATROPHY [None]
  - BONE PAIN [None]
